FAERS Safety Report 24737111 (Version 1)
Quarter: 2024Q4

REPORT INFORMATION
  Report Type: Spontaneous
  Country: CA (occurrence: CA)
  Receive Date: 20241216
  Receipt Date: 20241216
  Transmission Date: 20250114
  Serious: Yes (Other)
  Sender: TEVA
  Company Number: CA-TEVA-VS-3275546

PATIENT
  Age: 41 Year
  Sex: Female
  Weight: 133 kg

DRUGS (15)
  1. BUDESONIDE [Suspect]
     Active Substance: BUDESONIDE
     Indication: Product used for unknown indication
     Dosage: DOSE FORM : NOT SPECIFIED
     Route: 065
  2. MESALAMINE [Suspect]
     Active Substance: MESALAMINE
     Indication: Product used for unknown indication
     Dosage: DOSE FORM : TABLET (DELAYED AND EXTENDED RELEASE)
     Route: 065
  3. AZATHIOPRINE [Concomitant]
     Active Substance: AZATHIOPRINE
     Indication: Product used for unknown indication
     Dosage: DOSE FORM : NOT SPECIFIED
     Route: 065
  4. HUMIRA [Suspect]
     Active Substance: ADALIMUMAB
     Indication: Product used for unknown indication
     Dosage: DOSE FORM : NOT SPECIFIED
     Route: 058
  5. HUMIRA [Suspect]
     Active Substance: ADALIMUMAB
     Indication: Product used for unknown indication
     Dosage: DOSE FORM : NOT SPECIFIED
     Route: 058
  6. HUMIRA [Suspect]
     Active Substance: ADALIMUMAB
     Indication: Product used for unknown indication
     Dosage: DOSE FORM : NOT SPECIFIED
     Route: 065
  7. MERCAPTOPURINE [Concomitant]
     Active Substance: MERCAPTOPURINE
     Indication: Product used for unknown indication
     Dosage: DOSE FORM : NOT SPECIFIED
     Route: 065
  8. MESALAMINE [Suspect]
     Active Substance: MESALAMINE
     Indication: Product used for unknown indication
     Dosage: DOSE FORM : NOT SPECIFIED
     Route: 065
  9. METHOTREXATE [Concomitant]
     Active Substance: METHOTREXATE
     Indication: Product used for unknown indication
     Route: 065
  10. INFLECTRA [Suspect]
     Active Substance: INFLIXIMAB-DYYB
     Indication: Crohn^s disease
     Dosage: DOSE FORM : POWDER FOR SOLUTION INTRAVENOUS
     Route: 042
  11. INFLECTRA [Suspect]
     Active Substance: INFLIXIMAB-DYYB
     Indication: Crohn^s disease
     Dosage: DOSE FORM : POWDER FOR SOLUTION INTRAVENOUS
     Route: 042
  12. INFLECTRA [Suspect]
     Active Substance: INFLIXIMAB-DYYB
     Indication: Crohn^s disease
     Dosage: DOSE FORM : POWDER FOR SOLUTION INTRAVENOUS
     Route: 042
  13. INFLECTRA [Suspect]
     Active Substance: INFLIXIMAB-DYYB
     Indication: Crohn^s disease
     Dosage: DOSE FORM : POWDER FOR SOLUTION INTRAVENOUS
     Route: 042
  14. STELARA [Suspect]
     Active Substance: USTEKINUMAB
     Indication: Product used for unknown indication
     Dosage: DOSE FORM : SOLUTION SUBCUTANEOUS
     Route: 065
  15. STELARA [Suspect]
     Active Substance: USTEKINUMAB
     Indication: Product used for unknown indication
     Dosage: DOSE FORM : SOLUTION SUBCUTANEOUS
     Route: 065

REACTIONS (6)
  - Diarrhoea [Unknown]
  - Condition aggravated [Unknown]
  - Abdominal pain lower [Unknown]
  - Impaired quality of life [Unknown]
  - Drug ineffective [Unknown]
  - Off label use [Unknown]
